FAERS Safety Report 5683867-9 (Version None)
Quarter: 2008Q1

REPORT INFORMATION
  Report Type: 
  Country: None (occurrence: None)
  Receive Date: 20080326
  Receipt Date: 20080314
  Transmission Date: 20080703
  Serious: Yes (Life-Threatening)
  Sender: FDA-Public Use
  Company Number: 000290

PATIENT
  Age: 67 Year
  Sex: Male

DRUGS (13)
  1. PLETAL [Suspect]
     Indication: MYOCARDIAL INFARCTION
     Dosage: 50 MG, QID ORAL; 50 MG, QID, ORAL
     Route: 048
     Dates: start: 20080216, end: 20080225
  2. PLETAL [Suspect]
     Indication: MYOCARDIAL INFARCTION
     Dosage: 50 MG, QID ORAL; 50 MG, QID, ORAL
     Route: 048
     Dates: start: 20080216, end: 20080225
  3. ISOPROTERENOL HCL [Suspect]
  4. MUCOSTA (REBAMIPIDE) TABLET [Concomitant]
  5. BUFFERIN [Concomitant]
  6. AMIODIN OD (AMLODIPINE BESILATE) TABLET [Concomitant]
  7. FLUVASTATIN [Concomitant]
  8. ACTOS [Concomitant]
  9. GASTER D (FAMOTIDINE) TABLET [Concomitant]
  10. LENDORMIN D(BROTIZOLAM) TABLET [Concomitant]
  11. PROTERNOL-L (L-ISOPROTERENOL HYDROCHLORIDE) INJECTION [Concomitant]
  12. ATROPINE SULFATE (ATROPINE SULFATE) INJECTION [Concomitant]
  13. TEGRETOL [Concomitant]

REACTIONS (2)
  - LOSS OF CONSCIOUSNESS [None]
  - TORSADE DE POINTES [None]
